FAERS Safety Report 6811345-X (Version None)
Quarter: 2010Q2

REPORT INFORMATION
  Report Type: 
  Country: None (occurrence: None)
  Receive Date: 20100630
  Receipt Date: 20100218
  Transmission Date: 20101027
  Serious: No
  Sender: FDA-Public Use
  Company Number: US-AMGEN-KDL393966

PATIENT
  Sex: Female

DRUGS (5)
  1. PROCRIT [Suspect]
     Indication: ANAEMIA OF MALIGNANT DISEASE
  2. IRON [Concomitant]
     Route: 048
  3. NAPROXEN [Concomitant]
  4. STOOL SOFTENER [Concomitant]
  5. TYLENOL [Concomitant]

REACTIONS (4)
  - CHILLS [None]
  - HAEMOGLOBIN DECREASED [None]
  - PRURITUS GENERALISED [None]
  - PYREXIA [None]
